FAERS Safety Report 4627213-8 (Version None)
Quarter: 2005Q1

REPORT INFORMATION
  Report Type: 
  Country: None (occurrence: None)
  Receive Date: 20050330
  Receipt Date: 20050324
  Transmission Date: 20050727
  Serious: Yes (Disabling)
  Sender: FDA-Public Use
  Company Number: 213118

PATIENT
  Sex: Male

DRUGS (3)
  1. AVASTIN [Suspect]
     Indication: NEOPLASM MALIGNANT
     Dosage: Q3W, INTRAVENOUS
     Route: 042
  2. ELOXATIN [Suspect]
     Indication: NEOPLASM MALIGNANT
     Dosage: Q3W, INTRAVENOUS
     Route: 042
  3. XELODA [Suspect]
     Indication: NEOPLASM MALIGNANT
     Dosage: TABLET, ORAL
     Route: 048
     Dates: start: 20050101, end: 20050101

REACTIONS (3)
  - DYSSTASIA [None]
  - MUSCULAR WEAKNESS [None]
  - MYOPATHY [None]
